FAERS Safety Report 26202540 (Version 1)
Quarter: 2025Q4

REPORT INFORMATION
  Report Type: Spontaneous
  Country: JP (occurrence: JP)
  Receive Date: 20251226
  Receipt Date: 20251226
  Transmission Date: 20260118
  Serious: Yes (Other)
  Sender: Haleon PLC
  Company Number: JP-HALEON-2281101

PATIENT
  Age: 6 Decade
  Sex: Female

DRUGS (1)
  1. NICOTINELL [Suspect]
     Active Substance: NICOTINE
     Indication: Smoking cessation therapy
     Dosage: NICOTINELL TTS30 PRESCRIBED FOR TWO WEEKS ON DECEMBER 12, 2025

REACTIONS (2)
  - Hemiparesis [Unknown]
  - Headache [Recovering/Resolving]
